FAERS Safety Report 9786920 (Version 1)
Quarter: 2013Q4

REPORT INFORMATION
  Report Type: Spontaneous
  Country: US (occurrence: US)
  Receive Date: 20131227
  Receipt Date: 20131227
  Transmission Date: 20140711
  Serious: No
  Sender: FDA-Public Use
  Company Number: US-PFIZER INC-2013371536

PATIENT
  Age: 51 Year
  Sex: Male
  Weight: 159 kg

DRUGS (3)
  1. EFFEXOR XR [Suspect]
     Indication: OBSESSIVE-COMPULSIVE DISORDER
     Dosage: 150 MG, 2X/DAY
     Route: 048
  2. SYNTHROID [Concomitant]
     Indication: THYROID DISORDER
     Dosage: 75 MG, 1X/DAY
  3. WELLBUTRIN [Concomitant]
     Indication: ANXIETY
     Dosage: 150 MG, 1X/DAY

REACTIONS (1)
  - Osteoarthritis [Unknown]
